FAERS Safety Report 12299881 (Version 1)
Quarter: 2016Q2

REPORT INFORMATION
  Report Type: Spontaneous
  Country: US (occurrence: US)
  Receive Date: 20160425
  Receipt Date: 20160425
  Transmission Date: 20160815
  Serious: Yes (Hospitalization)
  Sender: FDA-Public Use
  Company Number: US-BEH-2016061517

PATIENT
  Sex: Female
  Weight: 134 kg

DRUGS (31)
  1. LMX [Concomitant]
     Active Substance: LIDOCAINE
  2. SYMBICORT [Concomitant]
     Active Substance: BUDESONIDE\FORMOTEROL FUMARATE DIHYDRATE
  3. PROZAC [Concomitant]
     Active Substance: FLUOXETINE HYDROCHLORIDE
  4. LOSARTAN. [Concomitant]
     Active Substance: LOSARTAN
  5. IPRATROPIUM [Concomitant]
     Active Substance: IPRATROPIUM
  6. METOPROLOL-HCTZ [Concomitant]
  7. LEVOCETIRIZINE [Concomitant]
     Active Substance: LEVOCETIRIZINE
  8. OXYGEN. [Concomitant]
     Active Substance: OXYGEN
  9. DALIRESP [Concomitant]
     Active Substance: ROFLUMILAST
  10. TIZANIDINE. [Concomitant]
     Active Substance: TIZANIDINE
  11. MUCINEX [Concomitant]
     Active Substance: GUAIFENESIN
  12. HEPARIN [Concomitant]
     Active Substance: HEPARIN SODIUM
  13. LEVOFLOXACIN. [Concomitant]
     Active Substance: LEVOFLOXACIN
  14. NEXIUM [Concomitant]
     Active Substance: ESOMEPRAZOLE MAGNESIUM
  15. ACETAMINOPHEN. [Concomitant]
     Active Substance: ACETAMINOPHEN
  16. DIPHENHYDRAMINE. [Concomitant]
     Active Substance: DIPHENHYDRAMINE
  17. SODIUM CHLORIDE. [Concomitant]
     Active Substance: SODIUM CHLORIDE
  18. WELLBUTRIN [Concomitant]
     Active Substance: BUPROPION HYDROCHLORIDE
  19. PROAIR HFA [Concomitant]
     Active Substance: ALBUTEROL SULFATE
  20. DIAZEPAM. [Concomitant]
     Active Substance: DIAZEPAM
  21. ONDANSETRON [Concomitant]
     Active Substance: ONDANSETRON
  22. NYSTATIN. [Concomitant]
     Active Substance: NYSTATIN
  23. EPIPEN [Concomitant]
     Active Substance: EPINEPHRINE
  24. ROPINIROLE. [Concomitant]
     Active Substance: ROPINIROLE
  25. ACETAMINOPHEN\HYDROCODONE BITARTRATE [Concomitant]
     Active Substance: ACETAMINOPHEN\HYDROCODONE BITARTRATE
  26. ZEMAIRA [Suspect]
     Active Substance: .ALPHA.1-PROTEINASE INHIBITOR HUMAN
     Indication: ENZYME ABNORMALITY
     Route: 042
     Dates: start: 20050503
  27. ZEMAIRA [Suspect]
     Active Substance: .ALPHA.1-PROTEINASE INHIBITOR HUMAN
     Indication: ENZYME ABNORMALITY
     Route: 042
     Dates: start: 20050503
  28. TRAMADOL. [Concomitant]
     Active Substance: TRAMADOL
  29. FIORICET [Concomitant]
     Active Substance: ACETAMINOPHEN\BUTALBITAL\CAFFEINE
  30. ALBUTEROL. [Concomitant]
     Active Substance: ALBUTEROL
  31. SPIRIVA [Concomitant]
     Active Substance: TIOTROPIUM BROMIDE MONOHYDRATE

REACTIONS (1)
  - Fall [Unknown]
